FAERS Safety Report 23116875 (Version 1)
Quarter: 2023Q4

REPORT INFORMATION
  Report Type: Report from Study
  Country: IN (occurrence: IN)
  Receive Date: 20231027
  Receipt Date: 20231027
  Transmission Date: 20240110
  Serious: Yes (Other)
  Sender: FDA-Public Use
  Company Number: IN-SUN PHARMACEUTICAL INDUSTRIES LTD-2023R1-414629

PATIENT

DRUGS (2)
  1. CAPECITABINE [Interacting]
     Active Substance: CAPECITABINE
     Indication: Neoplasm malignant
     Dosage: UNK
     Route: 065
  2. FOLIC ACID [Suspect]
     Active Substance: FOLIC ACID
     Indication: Product used for unknown indication
     Dosage: UNK
     Route: 065

REACTIONS (5)
  - Neutropenia [Unknown]
  - Drug interaction [Unknown]
  - Diarrhoea [Unknown]
  - Mucosal inflammation [Unknown]
  - Stomatitis [Unknown]
